FAERS Safety Report 20196190 (Version 2)
Quarter: 2022Q2

REPORT INFORMATION
  Report Type: Spontaneous
  Country: JP (occurrence: JP)
  Receive Date: 20211216
  Receipt Date: 20220408
  Transmission Date: 20220721
  Serious: Yes (Death)
  Sender: FDA-Public Use
  Company Number: JP-PFIZER INC-202101791901

PATIENT
  Age: 80 Year
  Sex: Female
  Weight: 44 kg

DRUGS (6)
  1. XELJANZ [Suspect]
     Active Substance: TOFACITINIB CITRATE
     Indication: Rheumatoid arthritis
     Dosage: 10 MG (5 MG 2 TABLETS), DAILY
     Dates: start: 20191228, end: 20211110
  2. PRASUGREL HYDROCHLORIDE [Concomitant]
     Active Substance: PRASUGREL HYDROCHLORIDE
     Dosage: 3.75, 1X/DAY
     Dates: start: 20170916, end: 20211127
  3. LANSOPRAZOLE [Concomitant]
     Active Substance: LANSOPRAZOLE
     Dosage: 15 MG, 1X/DAY
     Dates: start: 20170930, end: 20211127
  4. AMBROXOL [Concomitant]
     Active Substance: AMBROXOL
     Dosage: 15 MG, 3X/DAY
     Dates: start: 20170916, end: 20211127
  5. FUROSEMIDE [Concomitant]
     Active Substance: FUROSEMIDE
     Dosage: 20 MG, 1X/DAY
     Dates: start: 20170916, end: 20211127
  6. ONEALFA [Concomitant]
     Active Substance: ALFACALCIDOL
     Dosage: 0.5 UG, 2X/DAY
     Dates: start: 20200321, end: 20211117

REACTIONS (1)
  - Pancreatic carcinoma [Fatal]

NARRATIVE: CASE EVENT DATE: 20211030
